FAERS Safety Report 6401711-9 (Version None)
Quarter: 2009Q4

REPORT INFORMATION
  Report Type: 
  Country: None (occurrence: None)
  Receive Date: 20091009
  Receipt Date: 20090925
  Transmission Date: 20100525
  Serious: Yes (Other)
  Sender: FDA-Public Use
  Company Number: DSM-2009-00686

PATIENT
  Age: 76 Year
  Sex: Male
  Weight: 81 kg

DRUGS (4)
  1. SEVIKAR (OLMESARTAN MEDOXOMIL/AMLODIPINE BESILATE) (TABLET) [Suspect]
     Indication: ESSENTIAL HYPERTENSION
     Dosage: 40/10 MG (1 IN 1 D), ORAL; 20/5 MG (1 IN 1 D), ORAL
     Route: 048
     Dates: end: 20090513
  2. SEVIKAR (OLMESARTAN MEDOXOMIL/AMLODIPINE BESILATE) (TABLET) [Suspect]
     Indication: ESSENTIAL HYPERTENSION
     Dosage: 40/10 MG (1 IN 1 D), ORAL; 20/5 MG (1 IN 1 D), ORAL
     Route: 048
     Dates: start: 20090317
  3. LIPID LOWERING AGENTS [Concomitant]
  4. ORAL ANTICOAGULANT [Concomitant]

REACTIONS (2)
  - ARTHRITIS REACTIVE [None]
  - OEDEMA PERIPHERAL [None]
